FAERS Safety Report 20429568 (Version 1)
Quarter: 2022Q1

REPORT INFORMATION
  Report Type: Report from Study
  Country: FR (occurrence: FR)
  Receive Date: 20220204
  Receipt Date: 20220204
  Transmission Date: 20220424
  Serious: Yes (Hospitalization, Other)
  Sender: FDA-Public Use
  Company Number: FR-SERVIER-S19006235

PATIENT

DRUGS (10)
  1. PEGASPARGASE [Suspect]
     Active Substance: PEGASPARGASE
     Indication: Acute lymphocytic leukaemia
     Dosage: 1800 IU
     Route: 042
     Dates: start: 20190311
  2. METHOTREXATE [Suspect]
     Active Substance: METHOTREXATE
     Indication: Acute lymphocytic leukaemia
     Dosage: 12 MG ON D1, D29
     Route: 037
     Dates: start: 20190304
  3. METHOTREXATE [Suspect]
     Active Substance: METHOTREXATE
     Dosage: 18 MG ON D18, 15, 22
     Route: 048
     Dates: start: 20190311
  4. TN UNSPECIFIED [Concomitant]
     Indication: Acute lymphocytic leukaemia
     Dosage: 1.1 MG ON D1 AND 8
     Route: 042
     Dates: start: 20190304
  5. TN UNSPECIFIED [Concomitant]
     Indication: Acute lymphocytic leukaemia
     Dosage: 4.5 MG, FROM DAY 1 TO 15
     Route: 048
     Dates: start: 20180304
  6. TN UNSPECIFIED [Concomitant]
     Indication: Acute lymphocytic leukaemia
     Dosage: 36 MG FROM D1 TO 21
     Route: 048
     Dates: start: 20190304
  7. PIPERACILLIN SODIUM\TAZOBACTAM SODIUM [Concomitant]
     Active Substance: PIPERACILLIN SODIUM\TAZOBACTAM SODIUM
     Dosage: 1500 MG, QID
     Route: 042
     Dates: start: 20200330
  8. SIMOCTOCOG ALFA [Concomitant]
     Dosage: 1000 IU, 2X A WEEK
     Dates: start: 20200330
  9. TN UNSEPCIFIED [Concomitant]
     Dosage: 20 MG/KG, 3X A WEEK
     Dates: start: 20200330
  10. ACETAMINOPHEN [Suspect]
     Active Substance: ACETAMINOPHEN
     Dosage: UNK, PRN
     Dates: start: 20200330

REACTIONS (2)
  - Hepatic cytolysis [Recovered/Resolved]
  - Lung disorder [Recovered/Resolved]

NARRATIVE: CASE EVENT DATE: 20190328
